FAERS Safety Report 23550773 (Version 2)
Quarter: 2024Q2

REPORT INFORMATION
  Report Type: Report from Study
  Country: US (occurrence: US)
  Receive Date: 20240221
  Receipt Date: 20240404
  Transmission Date: 20240716
  Serious: Yes (Hospitalization, Other)
  Sender: FDA-Public Use
  Company Number: US-BIOGEN-2024BI01251129

PATIENT
  Age: 54 Year
  Sex: Male

DRUGS (2)
  1. TYSABRI [Suspect]
     Active Substance: NATALIZUMAB
     Indication: Multiple sclerosis
     Dosage: INFUSED OVER 1 HOUR
     Route: 050
     Dates: start: 20150629, end: 20220317
  2. TYSABRI [Suspect]
     Active Substance: NATALIZUMAB
     Route: 050
     Dates: start: 20240307

REACTIONS (7)
  - Atrophy [Unknown]
  - Coordination abnormal [Unknown]
  - Pulmonary embolism [Unknown]
  - Major depression [Unknown]
  - Mononeuropathy [Unknown]
  - Venous thrombosis [Unknown]
  - Embolism [Unknown]

NARRATIVE: CASE EVENT DATE: 20220831
